FAERS Safety Report 19086869 (Version 5)
Quarter: 2021Q4

REPORT INFORMATION
  Report Type: Spontaneous
  Country: JP (occurrence: JP)
  Receive Date: 20210402
  Receipt Date: 20211222
  Transmission Date: 20220303
  Serious: Yes (Death, Hospitalization, Other)
  Sender: FDA-Public Use
  Company Number: JP-GLAXOSMITHKLINE-JP2021JPN000539

PATIENT
  Age: 96 Year
  Sex: Female
  Weight: 35.5 kg

DRUGS (14)
  1. DAPRODUSTAT [Suspect]
     Active Substance: DAPRODUSTAT
     Indication: Nephrogenic anaemia
     Dosage: 4 MG, QD, AFTER DINNER
     Route: 048
     Dates: start: 20201228, end: 20201228
  2. FLUTICASONE FUROATE\VILANTEROL TRIFENATATE [Suspect]
     Active Substance: FLUTICASONE FUROATE\VILANTEROL TRIFENATATE
     Indication: Dyspnoea
     Dosage: UNK, QD, 1 INHALATION PER DOSE
     Route: 055
     Dates: start: 20201201
  3. DARBEPOETIN ALFA [Suspect]
     Active Substance: DARBEPOETIN ALFA
     Dosage: 90 ?G, WE
     Route: 042
     Dates: start: 20201230
  4. CELIPROLOL HYDROCHLORIDE [Concomitant]
     Active Substance: CELIPROLOL HYDROCHLORIDE
     Dosage: 100 MG, 2TAB
  5. ASPIRIN\LANSOPRAZOLE [Concomitant]
     Active Substance: ASPIRIN\LANSOPRAZOLE
     Dosage: 1 DF
  6. ALLOPURINOL [Concomitant]
     Active Substance: ALLOPURINOL
     Dosage: 100 MG
  7. FUROSEMIDE [Concomitant]
     Active Substance: FUROSEMIDE
     Dosage: 40 MG, AFTER BREAKFAST
     Dates: end: 20201229
  8. ISOSORBIDE DINITRATE TABLET [Concomitant]
     Dosage: 40 MG
  9. AMITIZA CAPSULE [Concomitant]
     Dosage: 24 ?G
  10. POLAPREZINC OD TABLET [Concomitant]
     Dosage: 75 MG, AFTER BREAKFAST AND DINNER
     Dates: end: 20201229
  11. FOLIAMIN TABLETS [Concomitant]
     Dosage: 5 MG, AFTER DINNER
     Dates: end: 20201229
  12. AMBROXOL HYDROCHLORIDE TABLETS [Concomitant]
     Dosage: 15 MG, TID, AFTER MEALS
     Dates: end: 20201229
  13. TULOBUTEROL TAPE [Concomitant]
     Indication: Dyspnoea
     Dosage: APPLY 1 SHEET ON THE CHEST, QD
  14. IRON SUCROSE [Concomitant]
     Active Substance: IRON SUCROSE
     Dosage: 40 MG, WE
     Dates: start: 20201230

REACTIONS (21)
  - Shunt occlusion [Unknown]
  - Haematemesis [Unknown]
  - Incarcerated hernia [Unknown]
  - Vomiting [Not Recovered/Not Resolved]
  - Intestinal obstruction [Fatal]
  - Hypercapnia [Fatal]
  - Atrial fibrillation [Fatal]
  - Carbon dioxide increased [Fatal]
  - Obturator hernia [Unknown]
  - Dehydration [Unknown]
  - Back pain [Recovering/Resolving]
  - Abdominal pain [Unknown]
  - Dysphagia [Not Recovered/Not Resolved]
  - Dyspnoea [Recovering/Resolving]
  - Dysphoria [Unknown]
  - Wheezing [Unknown]
  - Nausea [Unknown]
  - Abdominal distension [Unknown]
  - Sputum retention [Unknown]
  - Constipation [Unknown]
  - Gastrointestinal sounds abnormal [Unknown]

NARRATIVE: CASE EVENT DATE: 20201228
